FAERS Safety Report 10067745 (Version 1)
Quarter: 2014Q2

REPORT INFORMATION
  Report Type: Spontaneous
  Country: US (occurrence: None)
  Receive Date: 20140407
  Receipt Date: 20140407
  Transmission Date: 20141212
  Serious: No
  Sender: FDA-Public Use
  Company Number: 14AE015

PATIENT
  Sex: Female

DRUGS (4)
  1. IBUPROFEN [Suspect]
     Indication: HEADACHE
     Dosage: BY MOUTH
     Dates: start: 20140331
  2. LANSOPRAZOLE [Concomitant]
  3. SERTTRALINE [Concomitant]
  4. FOLIC ACID [Concomitant]

REACTIONS (2)
  - Malaise [None]
  - Vomiting [None]
